FAERS Safety Report 20992623 (Version 1)
Quarter: 2022Q2

REPORT INFORMATION
  Report Type: Spontaneous
  Country: US (occurrence: None)
  Receive Date: 20220621
  Receipt Date: 20220621
  Transmission Date: 20220720
  Serious: Yes (Death)
  Sender: FDA-Public Use
  Company Number: None

PATIENT
  Age: 80 Year
  Sex: Female

DRUGS (1)
  1. SANDIMMUNE [Suspect]
     Active Substance: CYCLOSPORINE
     Indication: Transplant
     Dosage: FREQUENCY : TWICE A WEEK;?
     Route: 048
     Dates: start: 20200901, end: 20220412

REACTIONS (1)
  - Death [None]

NARRATIVE: CASE EVENT DATE: 20220424
